FAERS Safety Report 14596315 (Version 2)
Quarter: 2018Q2

REPORT INFORMATION
  Report Type: Report from Study
  Country: DE (occurrence: DE)
  Receive Date: 20180303
  Receipt Date: 20180427
  Transmission Date: 20180711
  Serious: Yes (Hospitalization, Other)
  Sender: FDA-Public Use
  Company Number: DE-TEVA-2018-DE-863777

PATIENT
  Age: 57 Year
  Sex: Female

DRUGS (2)
  1. COPAXONE [Suspect]
     Active Substance: GLATIRAMER ACETATE
     Indication: MULTIPLE SCLEROSIS
     Route: 058
     Dates: start: 20161114, end: 20170717
  2. DEKRISTOL 20000 IE [Concomitant]
     Dosage: 1428.5714 IU (INTERNATIONAL UNIT) DAILY; EVERY SECOND SUNDAY

REACTIONS (5)
  - Anaphylactic shock [Unknown]
  - Drug hypersensitivity [Recovered/Resolved]
  - Feeling hot [Unknown]
  - Dyspnoea [Recovered/Resolved]
  - Chills [Unknown]

NARRATIVE: CASE EVENT DATE: 20170717
